FAERS Safety Report 6066846-1 (Version None)
Quarter: 2009Q1

REPORT INFORMATION
  Report Type: 
  Country: None (occurrence: None)
  Receive Date: 20090203
  Receipt Date: 20090121
  Transmission Date: 20090719
  Serious: Yes (Hospitalization)
  Sender: FDA-Public Use
  Company Number: 090121011

PATIENT
  Age: 73 Year
  Sex: Female

DRUGS (1)
  1. PRAMOSONE [Suspect]
     Indication: DERMATITIS

REACTIONS (5)
  - APPLICATION SITE RASH [None]
  - HYPERSENSITIVITY [None]
  - PRURITUS [None]
  - SWELLING FACE [None]
  - THROAT TIGHTNESS [None]
